FAERS Safety Report 8791408 (Version 1)
Quarter: 2012Q4

REPORT INFORMATION
  Report Type: Spontaneous
  Country: US (occurrence: None)
  Receive Date: 20120914
  Receipt Date: 20120914
  Transmission Date: 20130627
  Serious: Yes (Other)
  Sender: FDA-Public Use
  Company Number: None

PATIENT
  Age: 55 Year
  Sex: Female
  Weight: 61.69 kg

DRUGS (2)
  1. TORADOL [Suspect]
     Indication: RASH
     Dosage: 30 mg once IV Rt
     Route: 042
     Dates: start: 20120827
  2. TORADOL [Suspect]
     Indication: MUSCLE ACHE
     Dosage: 30 mg once IV Rt
     Route: 042
     Dates: start: 20120827

REACTIONS (2)
  - Weight increased [None]
  - Swelling face [None]
